FAERS Safety Report 7577709-4 (Version None)
Quarter: 2011Q2

REPORT INFORMATION
  Report Type: 
  Country: None (occurrence: None)
  Receive Date: 20110628
  Receipt Date: 20110616
  Transmission Date: 20111010
  Serious: Yes (Hospitalization)
  Sender: FDA-Public Use
  Company Number: US-CELGENEUS-163-20785-11052192

PATIENT
  Sex: Female

DRUGS (10)
  1. THALOMID [Suspect]
     Dosage: 250 MILLIGRAM
     Route: 048
     Dates: start: 20091201, end: 20100101
  2. THALOMID [Suspect]
     Dosage: 200 MILLIGRAM
     Route: 048
     Dates: start: 20101001
  3. CELEBREX [Concomitant]
     Dosage: 200 MILLIGRAM
     Route: 065
  4. THALOMID [Suspect]
     Dosage: 150 MILLIGRAM
     Route: 048
     Dates: start: 20091001, end: 20090101
  5. THALOMID [Suspect]
     Dosage: 100 MILLIGRAM
     Route: 048
     Dates: start: 20110101, end: 20110101
  6. THALOMID [Suspect]
     Dosage: 100 MILLIGRAM
     Route: 048
     Dates: start: 20110201, end: 20110101
  7. VITAMIN D [Concomitant]
     Dosage: 1000 MILLIGRAM
     Route: 065
  8. CALCIUM CARBONATE [Concomitant]
     Dosage: 1000 MILLIGRAM
     Route: 065
  9. THALOMID [Suspect]
     Dosage: 100 MILLIGRAM
     Route: 048
     Dates: start: 20100801, end: 20100101
  10. THALOMID [Suspect]
     Dosage: 50 MILLIGRAM
     Route: 048
     Dates: start: 20110501

REACTIONS (2)
  - HEADACHE [None]
  - BENIGN INTRACRANIAL HYPERTENSION [None]
